FAERS Safety Report 10675122 (Version 3)
Quarter: 2015Q2

REPORT INFORMATION
  Report Type: Spontaneous
  Country: US (occurrence: US)
  Receive Date: 20141224
  Receipt Date: 20150604
  Transmission Date: 20150821
  Serious: No
  Sender: FDA-Public Use
  Company Number: US-GLAXOSMITHKLINE-US2014GSK041134

PATIENT
  Sex: Male

DRUGS (1)
  1. PROMACTA [Suspect]
     Active Substance: ELTROMBOPAG OLAMINE
     Indication: IMMUNE THROMBOCYTOPENIC PURPURA
     Dosage: 25 MG, U
     Dates: start: 2008

REACTIONS (4)
  - Platelet count decreased [Unknown]
  - Blood disorder [Unknown]
  - Spleen disorder [Unknown]
  - Drug dispensing error [Unknown]

NARRATIVE: CASE EVENT DATE: 2014
